FAERS Safety Report 5300272-5 (Version None)
Quarter: 2007Q2

REPORT INFORMATION
  Report Type: 
  Country: None (occurrence: None)
  Receive Date: 20070418
  Receipt Date: 20070411
  Transmission Date: 20071010
  Serious: Yes (Other)
  Sender: FDA-Public Use
  Company Number: JP-BAYER-200710278BYL

PATIENT
  Age: 73 Year
  Sex: Female

DRUGS (1)
  1. AVELOX [Suspect]
     Indication: PHARYNGITIS
     Dosage: UNIT DOSE: 400 MG
     Route: 048
     Dates: start: 20070312, end: 20070315

REACTIONS (1)
  - FAECES DISCOLOURED [None]
